FAERS Safety Report 25805053 (Version 1)
Quarter: 2025Q3

REPORT INFORMATION
  Report Type: Spontaneous
  Country: ID (occurrence: ID)
  Receive Date: 20250916
  Receipt Date: 20250916
  Transmission Date: 20251021
  Serious: Yes (Life-Threatening, Other)
  Sender: UNICHEM
  Company Number: ID-UNICHEM LABORATORIES LIMITED-UNI-2025-ID-003200

PATIENT

DRUGS (1)
  1. AMIODARONE [Suspect]
     Active Substance: AMIODARONE
     Indication: Atrial fibrillation
     Route: 042

REACTIONS (4)
  - Cardiac arrest [Unknown]
  - Atrial fibrillation [Unknown]
  - Ventricular extrasystoles [Unknown]
  - Bundle branch block [Unknown]
